FAERS Safety Report 5307107-5 (Version None)
Quarter: 2007Q2

REPORT INFORMATION
  Report Type: 
  Country: None (occurrence: None)
  Receive Date: 20070425
  Receipt Date: 20070416
  Transmission Date: 20071010
  Serious: Yes (Hospitalization)
  Sender: FDA-Public Use
  Company Number: FR-AMGEN-UK219808

PATIENT
  Sex: Female

DRUGS (2)
  1. MIMPARA [Suspect]
     Indication: HYPERPARATHYROIDISM SECONDARY
     Route: 048
     Dates: start: 20040901, end: 20070101
  2. VALGANCICLOVIR HCL [Suspect]
     Route: 065

REACTIONS (1)
  - NEUROPATHY PERIPHERAL [None]
